FAERS Safety Report 11350915 (Version 1)
Quarter: 2015Q3

REPORT INFORMATION
  Report Type: Spontaneous
  Country: US (occurrence: US)
  Receive Date: 20150807
  Receipt Date: 20150807
  Transmission Date: 20151125
  Serious: No
  Sender: FDA-Public Use
  Company Number: US-JNJFOC-20150305257

PATIENT
  Age: 27 Year
  Sex: Male
  Weight: 89.81 kg

DRUGS (3)
  1. MENS ROGAINE EXTRA STRENGTH [Suspect]
     Active Substance: MINOXIDIL
     Indication: ALOPECIA
     Route: 061
  2. MENS ROGAINE EXTRA STRENGTH [Suspect]
     Active Substance: MINOXIDIL
     Indication: ALOPECIA
     Route: 061
     Dates: start: 20150217
  3. BIOTIN [Concomitant]
     Active Substance: BIOTIN
     Indication: ALOPECIA
     Route: 065

REACTIONS (3)
  - Alopecia [Not Recovered/Not Resolved]
  - Underdose [Unknown]
  - Product use issue [Unknown]
